FAERS Safety Report 7482596-9 (Version None)
Quarter: 2011Q2

REPORT INFORMATION
  Report Type: 
  Country: None (occurrence: None)
  Receive Date: 20110516
  Receipt Date: 20110510
  Transmission Date: 20111010
  Serious: Yes (Death)
  Sender: FDA-Public Use
  Company Number: US-ASTRAZENECA-2011SE15989

PATIENT
  Age: 38 Year
  Sex: Female

DRUGS (6)
  1. XANAX [Concomitant]
  2. SEROQUEL [Suspect]
     Indication: MAJOR DEPRESSION
     Route: 048
     Dates: start: 20070101, end: 20101210
  3. ZOLOFT [Concomitant]
     Route: 048
  4. SEROQUEL [Suspect]
     Route: 048
     Dates: start: 20070101, end: 20101210
  5. RESTORIL [Concomitant]
     Route: 048
  6. SAPHRIS [Concomitant]
     Route: 048

REACTIONS (1)
  - DEATH [None]
